FAERS Safety Report 9040845 (Version 1)
Quarter: 2013Q1

REPORT INFORMATION
  Report Type: Report from Study
  Country: US (occurrence: US)
  Receive Date: 20130129
  Receipt Date: 20130129
  Transmission Date: 20140127
  Serious: No
  Sender: FDA-Public Use
  Company Number: US-ABBOTT-12P-163-0899817-00

PATIENT
  Age: 18 Year
  Sex: Female

DRUGS (2)
  1. HUMIRA 40 MG/0.8 ML PEN [Suspect]
     Indication: PSORIASIS
     Route: 058
     Dates: start: 20120112
  2. JUNEL [Concomitant]
     Indication: CONTRACEPTION
     Route: 048

REACTIONS (3)
  - Injection site mass [Recovered/Resolved]
  - Injection site pruritus [Unknown]
  - Injection site urticaria [Unknown]
